FAERS Safety Report 9912921 (Version 1)
Quarter: 2014Q1

REPORT INFORMATION
  Report Type: Spontaneous
  Country: TR (occurrence: None)
  Receive Date: 20140214
  Receipt Date: 20140214
  Transmission Date: 20141002
  Serious: Yes (Other)
  Sender: FDA-Public Use
  Company Number: 2014P1001116

PATIENT
  Age: 53 Year
  Sex: Male

DRUGS (4)
  1. AMIODARONE [Suspect]
     Dates: start: 2010
  2. VERAPAMIL [Concomitant]
  3. IRBESARTAN [Concomitant]
  4. ACETYLSALICYLIC ACID [Concomitant]

REACTIONS (5)
  - Epididymitis [None]
  - Hydrocele [None]
  - Blood thyroid stimulating hormone increased [None]
  - Bundle branch block left [None]
  - Left ventricular hypertrophy [None]
